FAERS Safety Report 10707119 (Version 1)
Quarter: 2015Q1

REPORT INFORMATION
  Report Type: Spontaneous
  Country: US (occurrence: None)
  Receive Date: 20150112
  Receipt Date: 20150112
  Transmission Date: 20150721
  Serious: Yes (Other)
  Sender: FDA-Public Use
  Company Number: None

PATIENT
  Age: 67 Year
  Sex: Male
  Weight: 81.65 kg

DRUGS (1)
  1. POLYMYXIN B SULFATE/TRIMETHOPRIM [Suspect]
     Active Substance: POLYMYXIN B SULFATE\TRIMETHOPRIM
     Indication: CORNEAL TRANSPLANT
     Dosage: 1 DROP FOUR TIMES DAILY INTO THE EYE
     Route: 047
     Dates: start: 20140407, end: 20150105

REACTIONS (2)
  - Eye infection [None]
  - Rash [None]

NARRATIVE: CASE EVENT DATE: 20150105
